FAERS Safety Report 15269526 (Version 2)
Quarter: 2018Q3

REPORT INFORMATION
  Report Type: Spontaneous
  Country: FR (occurrence: FR)
  Receive Date: 20180813
  Receipt Date: 20180823
  Transmission Date: 20181010
  Serious: Yes (Other)
  Sender: FDA-Public Use
  Company Number: FR-ROCHE-2168990

PATIENT
  Age: 79 Year
  Sex: Female
  Weight: 57 kg

DRUGS (31)
  1. POLARAMINE [Suspect]
     Active Substance: DEXCHLORPHENIRAMINE MALEATE
     Indication: PRODUCT USED FOR UNKNOWN INDICATION
     Dosage: RECEIVED MOST RECENT DOSE ON 15/DEC/2016
     Route: 042
     Dates: start: 20161215
  2. MESNA. [Suspect]
     Active Substance: MESNA
     Indication: DRUG TOXICITY PROPHYLAXIS
     Dosage: 100 MG/ML ?RECEIVED MOST RECENT DOSE ON 15/DEC/2016
     Route: 040
     Dates: start: 20161215
  3. POLARAMINE [Suspect]
     Active Substance: DEXCHLORPHENIRAMINE MALEATE
     Indication: PROPHYLAXIS OF NAUSEA AND VOMITING
  4. HYDROCHLOROTHIAZIDE. [Concomitant]
     Active Substance: HYDROCHLOROTHIAZIDE
     Route: 048
  5. MABTHERA [Suspect]
     Active Substance: RITUXIMAB
     Route: 041
  6. ONDANSETRON [Suspect]
     Active Substance: ONDANSETRON
     Indication: PROPHYLAXIS OF NAUSEA AND VOMITING
     Dosage: 2 MG/ML, SOLUTION INJECTABLE?RECEIVED MOST RECENT DOSE ON 15/DEC/2016
     Route: 040
     Dates: start: 20161215
  7. DOXORUBICINE TEVA [Suspect]
     Active Substance: DOXORUBICIN
     Indication: MANTLE CELL LYMPHOMA STAGE IV
     Dosage: RECEIVED MOST RECENT DOSE ON 15/DEC/2016
     Route: 041
     Dates: start: 20161215
  8. HYDROCHLOROTHIAZIDE. [Concomitant]
     Active Substance: HYDROCHLOROTHIAZIDE
     Route: 048
  9. ENDOXAN [Suspect]
     Active Substance: CYCLOPHOSPHAMIDE
     Indication: MANTLE CELL LYMPHOMA STAGE IV
     Dosage: RECEIVED MOST RECENT DOSE ON 15/DEC/2016
     Route: 041
     Dates: start: 20161215
  10. VINCRISTINE HOSPIRA [Suspect]
     Active Substance: VINCRISTINE
     Dosage: RECEIVED MOST RECENT DOSE ON 15/DEC/2016
     Route: 042
     Dates: start: 20161215
  11. VALACICLOVIR [Concomitant]
     Active Substance: VALACYCLOVIR HYDROCHLORIDE
     Route: 048
     Dates: start: 20161215
  12. METFORMIN [Concomitant]
     Active Substance: METFORMIN HYDROCHLORIDE
     Route: 048
  13. GLICLAZIDE [Concomitant]
     Active Substance: GLICLAZIDE
     Route: 048
  14. SPECIAFOLDINE [Concomitant]
     Active Substance: FOLIC ACID
     Dosage: 10 MG DAILY
     Route: 048
     Dates: start: 20161215
  15. PREDNISOLONE. [Concomitant]
     Active Substance: PREDNISOLONE
     Indication: CHEMOTHERAPY
     Route: 065
     Dates: start: 20161215
  16. MABTHERA [Suspect]
     Active Substance: RITUXIMAB
     Indication: MANTLE CELL LYMPHOMA STAGE IV
     Dosage: RECEIVED MOST RECENT DOSE ON 15/DEC/2016
     Route: 041
     Dates: start: 20161215
  17. POLARAMINE [Suspect]
     Active Substance: DEXCHLORPHENIRAMINE MALEATE
     Indication: ALLERGY PROPHYLAXIS
     Dosage: 5 MG/1 ML, SOLUTION INJECTABLE?RECEIVED MOST RECENT DOSE ON 15/DEC/2016
     Route: 040
     Dates: start: 20161215
  18. POLARAMINE [Suspect]
     Active Substance: DEXCHLORPHENIRAMINE MALEATE
     Indication: DRUG TOXICITY PROPHYLAXIS
     Route: 065
  19. POLARAMINE [Suspect]
     Active Substance: DEXCHLORPHENIRAMINE MALEATE
     Indication: MANTLE CELL LYMPHOMA STAGE IV
  20. GLICLAZIDE [Concomitant]
     Active Substance: GLICLAZIDE
     Route: 048
  21. GLICLAZIDE [Concomitant]
     Active Substance: GLICLAZIDE
     Route: 048
  22. VINCRISTINE HOSPIRA [Suspect]
     Active Substance: VINCRISTINE
     Indication: MANTLE CELL LYMPHOMA STAGE IV
     Dosage: RECEIVED MOST RECENT DOSE ON 15/DEC/2016
     Route: 042
     Dates: start: 20161215
  23. VINCRISTINE HOSPIRA [Suspect]
     Active Substance: VINCRISTINE
     Indication: DRUG TOXICITY PROPHYLAXIS
     Dosage: RECEIVED MOST RECENT DOSE ON 15/DEC/2016
     Route: 042
     Dates: start: 20161215
  24. GLICLAZIDE [Concomitant]
     Active Substance: GLICLAZIDE
     Route: 048
  25. GLICLAZIDE [Concomitant]
     Active Substance: GLICLAZIDE
     Route: 048
     Dates: start: 20161215
  26. BACTRIM [Concomitant]
     Active Substance: SULFAMETHOXAZOLE\TRIMETHOPRIM
     Route: 048
     Dates: start: 20161215
  27. PRAVASTATINE SODIQUE [Concomitant]
     Active Substance: PRAVASTATIN SODIUM
     Route: 048
  28. VALSARTAN. [Concomitant]
     Active Substance: VALSARTAN
     Route: 048
  29. ONDANSETRON [Suspect]
     Active Substance: ONDANSETRON
     Route: 040
  30. KARDEGIC [Concomitant]
     Active Substance: ASPIRIN DL-LYSINE
     Dosage: 160 MG
     Route: 048
  31. GLICLAZIDE [Concomitant]
     Active Substance: GLICLAZIDE
     Route: 048

REACTIONS (1)
  - Polyarthritis [Recovered/Resolved]
